FAERS Safety Report 8321553-7 (Version None)
Quarter: 2012Q2

REPORT INFORMATION
  Report Type: 
  Country: None (occurrence: None)
  Receive Date: 20120430
  Receipt Date: 20120426
  Transmission Date: 20120825
  Serious: No
  Sender: FDA-Public Use
  Company Number: US-PFIZER INC-2012095158

PATIENT

DRUGS (9)
  1. FLEXERIL [Suspect]
     Indication: NEURALGIA
  2. CELEBREX [Suspect]
     Indication: PAIN
     Dosage: UNK
  3. VICODIN [Suspect]
     Indication: PAIN
     Dosage: UNK
  4. CELEBREX [Suspect]
     Indication: NEURALGIA
  5. VICODIN [Suspect]
     Indication: ARTHRALGIA
  6. VICODIN [Suspect]
     Indication: NEURALGIA
  7. CELEBREX [Suspect]
     Indication: ARTHRALGIA
  8. FLEXERIL [Suspect]
     Indication: PAIN
     Dosage: UNK
  9. FLEXERIL [Suspect]
     Indication: ARTHRALGIA

REACTIONS (2)
  - SEDATION [None]
  - PAIN [None]
